FAERS Safety Report 10432717 (Version 1)
Quarter: 2014Q3

REPORT INFORMATION
  Report Type: Other
  Country: FR (occurrence: FR)
  Receive Date: 20140905
  Receipt Date: 20140905
  Transmission Date: 20150326
  Serious: Yes (Death)
  Sender: FDA-Public Use
  Company Number: FR-MYLAN-2014M1002448

PATIENT

DRUGS (13)
  1. METHOTREXATE (METHOTREXATE SODIUM) [Suspect]
     Active Substance: METHOTREXATE SODIUM
     Indication: PRODUCT USED FOR UNKNOWN INDICATION
     Dosage: 12 MG, UNK
     Route: 037
     Dates: start: 20140428, end: 20140428
  2. CYTARABINE SANDOZ [Suspect]
     Active Substance: CYTARABINE
     Indication: PRODUCT USED FOR UNKNOWN INDICATION
     Dosage: 30 MG, UNK
     Route: 037
     Dates: start: 20140428, end: 20140428
  3. ENDOXAN                            /00021101/ [Suspect]
     Active Substance: CYCLOPHOSPHAMIDE
     Indication: PRODUCT USED FOR UNKNOWN INDICATION
     Dosage: 1060 MG, QD
     Route: 042
     Dates: start: 20140424, end: 20140424
  4. DEXAMETHASONE MYLAN [Concomitant]
     Active Substance: DEXAMETHASONE
     Dosage: UNK
  5. PLITICAN [Concomitant]
     Active Substance: ALIZAPRIDE HYDROCHLORIDE
     Dosage: UNK
  6. GLIVEC [Suspect]
     Active Substance: IMATINIB MESYLATE
     Indication: PRODUCT USED FOR UNKNOWN INDICATION
     Dosage: UNK
     Route: 048
     Dates: start: 20140423
  7. VINCRISTINE HOSPIRA [Suspect]
     Active Substance: VINCRISTINE
     Indication: PRODUCT USED FOR UNKNOWN INDICATION
     Dosage: 1.59 MG, UNK
     Route: 042
     Dates: start: 20140423, end: 20140501
  8. CERUBIDINE [Suspect]
     Active Substance: DAUNORUBICIN HYDROCHLORIDE
     Indication: PRODUCT USED FOR UNKNOWN INDICATION
     Dosage: 31.8 MG, ONCE
     Route: 042
     Dates: start: 20140424, end: 20140501
  9. ONDANSETRON AGUETTANT [Concomitant]
     Active Substance: ONDANSETRON
     Dosage: UNK
  10. KIDROLASE [Suspect]
     Active Substance: ASPARAGINASE
     Indication: PRODUCT USED FOR UNKNOWN INDICATION
     Dosage: UNK
     Route: 042
     Dates: start: 20140427, end: 20140501
  11. PREDNISOLONE. [Suspect]
     Active Substance: PREDNISOLONE
     Indication: PRODUCT USED FOR UNKNOWN INDICATION
     Dosage: 12 MG, UNK
     Route: 037
     Dates: start: 20140428, end: 20140428
  12. UROMITEXAN [Suspect]
     Active Substance: MESNA
  13. SOLUPRED                           /00016201/ [Suspect]
     Active Substance: PREDNISOLONE
     Indication: PRODUCT USED FOR UNKNOWN INDICATION
     Dosage: UNK
     Route: 048
     Dates: start: 20140424, end: 20140503

REACTIONS (11)
  - Tachycardia [None]
  - Vomiting [None]
  - Urinary incontinence [None]
  - Headache [None]
  - Toxicity to various agents [None]
  - Delirium [None]
  - Loss of consciousness [None]
  - Convulsion [None]
  - Infection [None]
  - Cerebral vasoconstriction [Fatal]
  - Nervous system disorder [None]

NARRATIVE: CASE EVENT DATE: 20140505
